FAERS Safety Report 9474702 (Version 2)
Quarter: 2013Q3

REPORT INFORMATION
  Report Type: Spontaneous
  Country: US (occurrence: US)
  Receive Date: 20130823
  Receipt Date: 20130823
  Transmission Date: 20140515
  Serious: Yes (Hospitalization)
  Sender: FDA-Public Use
  Company Number: US-ABBOTT-13P-163-1117491-00

PATIENT
  Age: 60 Year
  Sex: Male

DRUGS (2)
  1. HUMIRA [Suspect]
     Indication: PSORIASIS
     Dates: end: 201306
  2. HUMIRA [Suspect]
     Indication: PSORIATIC ARTHROPATHY

REACTIONS (12)
  - Delirium [Recovered/Resolved]
  - Pneumonia legionella [Recovered/Resolved]
  - Sepsis [Recovered/Resolved]
  - Type 2 diabetes mellitus [Unknown]
  - Atrial fibrillation [Unknown]
  - Hepatic enzyme increased [Recovered/Resolved]
  - Malnutrition [Unknown]
  - Lactic acidosis [Recovered/Resolved]
  - Hypovolaemia [Unknown]
  - Hyponatraemia [Recovered/Resolved]
  - Hypophosphataemia [Unknown]
  - Acquired hydrocele [Unknown]
